FAERS Safety Report 15429060 (Version 8)
Quarter: 2021Q1

REPORT INFORMATION
  Report Type: Spontaneous
  Country: US (occurrence: US)
  Receive Date: 20180926
  Receipt Date: 20210322
  Transmission Date: 20210419
  Serious: Yes (Hospitalization, Other)
  Sender: FDA-Public Use
  Company Number: US-PFIZER INC-2018385211

PATIENT
  Age: 73 Year
  Sex: Female
  Weight: 74 kg

DRUGS (1)
  1. XELJANZ XR [Suspect]
     Active Substance: TOFACITINIB CITRATE
     Indication: RHEUMATOID ARTHRITIS
     Dosage: 11 MG, 1X/DAY

REACTIONS (9)
  - Circumstance or information capable of leading to medication error [Unknown]
  - Cough [Unknown]
  - Dehydration [Unknown]
  - Hand deformity [Unknown]
  - Dyspnoea [Unknown]
  - Dysphonia [Unknown]
  - Dysgraphia [Unknown]
  - Reading disorder [Unknown]
  - Musculoskeletal disorder [Unknown]
